FAERS Safety Report 13683209 (Version 1)
Quarter: 2017Q2

REPORT INFORMATION
  Report Type: Spontaneous
  Country: US (occurrence: US)
  Receive Date: 20170623
  Receipt Date: 20170623
  Transmission Date: 20170830
  Serious: No
  Sender: FDA-Public Use
  Company Number: US-MALLINCKRODT-T201701680

PATIENT
  Sex: Female

DRUGS (1)
  1. H.P. ACTHAR [Suspect]
     Active Substance: CORTICOTROPIN
     Indication: SARCOIDOSIS
     Dosage: UNKNOWN DOSE
     Route: 065

REACTIONS (4)
  - Injection site mass [Unknown]
  - Injection site bruising [Unknown]
  - Incorrect route of drug administration [Unknown]
  - Injection site haemorrhage [Unknown]
